FAERS Safety Report 6736234-0 (Version None)
Quarter: 2010Q2

REPORT INFORMATION
  Report Type: 
  Country: None (occurrence: None)
  Receive Date: 20100521
  Receipt Date: 20100331
  Transmission Date: 20101027
  Serious: Yes (Other)
  Sender: FDA-Public Use
  Company Number: JP-BAYER-200911858BYL

PATIENT
  Age: 75 Year
  Sex: Male
  Weight: 53 kg

DRUGS (13)
  1. NEXAVAR [Suspect]
     Indication: RENAL CELL CARCINOMA
     Dosage: TOTAL DAILY DOSE: 400 MG  UNIT DOSE: 200 MG
     Route: 048
     Dates: start: 20080409, end: 20080424
  2. NEXAVAR [Suspect]
     Dosage: UNIT DOSE: 200 MG
     Route: 048
     Dates: start: 20080613, end: 20080625
  3. NEXAVAR [Suspect]
     Dosage: 400MG OR 200MG IN ALTERNATE SHIFTS
     Route: 048
     Dates: start: 20090402, end: 20090601
  4. NEXAVAR [Suspect]
     Dosage: 400MG OR 200MG IN ALTERNATE SHIFTS
     Route: 048
     Dates: start: 20081127, end: 20081221
  5. NEXAVAR [Suspect]
     Dosage: 400MG OR 200MG IN ALTERNATE SHIFTS
     Route: 048
     Dates: start: 20080904, end: 20080924
  6. NEXAVAR [Suspect]
     Dosage: UNIT DOSE: 200 MG
     Route: 048
     Dates: start: 20080425, end: 20080612
  7. NEXAVAR [Suspect]
     Dosage: UNIT DOSE: 200 MG
     Route: 048
     Dates: start: 20080704, end: 20080903
  8. NEXAVAR [Suspect]
     Dosage: TOTAL DAILY DOSE: 400 MG  UNIT DOSE: 200 MG
     Route: 048
     Dates: start: 20080925, end: 20081126
  9. NEXAVAR [Suspect]
     Dosage: TOTAL DAILY DOSE: 400 MG  UNIT DOSE: 200 MG
     Route: 048
     Dates: start: 20081222, end: 20090401
  10. STICK ZENOL [Concomitant]
     Indication: MYALGIA
     Route: 061
     Dates: start: 20080806
  11. CEFZON [Concomitant]
     Indication: PYODERMA
     Route: 048
     Dates: start: 20080820, end: 20080822
  12. CRAVIT [Concomitant]
     Indication: PYODERMA
     Route: 048
     Dates: start: 20080912, end: 20080916
  13. RINDERON [Concomitant]
     Route: 031
     Dates: start: 20090108

REACTIONS (23)
  - ALOPECIA [None]
  - BASOPHIL COUNT INCREASED [None]
  - BILIRUBIN CONJUGATED INCREASED [None]
  - BLOOD ALKALINE PHOSPHATASE INCREASED [None]
  - BLOOD AMYLASE INCREASED [None]
  - BLOOD BILIRUBIN INCREASED [None]
  - C-REACTIVE PROTEIN INCREASED [None]
  - DYSPHONIA [None]
  - ERYTHEMA [None]
  - FLUSHING [None]
  - HAEMOGLOBIN DECREASED [None]
  - HYPOAESTHESIA [None]
  - HYPOPHOSPHATAEMIA [None]
  - MALAISE [None]
  - MUSCULOSKELETAL STIFFNESS [None]
  - NEUTROPHIL COUNT DECREASED [None]
  - OEDEMA PERIPHERAL [None]
  - PALMAR-PLANTAR ERYTHRODYSAESTHESIA SYNDROME [None]
  - PLATELET COUNT DECREASED [None]
  - RETINAL ARTERY OCCLUSION [None]
  - RETINAL VEIN OCCLUSION [None]
  - SCLEREMA [None]
  - WHITE BLOOD CELL COUNT DECREASED [None]
